FAERS Safety Report 21189187 (Version 1)
Quarter: 2022Q3

REPORT INFORMATION
  Report Type: Spontaneous
  Country: US (occurrence: None)
  Receive Date: 20220808
  Receipt Date: 20220808
  Transmission Date: 20221027
  Serious: Yes (Death)
  Sender: FDA-Public Use
  Company Number: None

PATIENT
  Age: 75 Year
  Sex: Male
  Weight: 93.89 kg

DRUGS (12)
  1. TRELSTAR [Suspect]
     Active Substance: TRIPTORELIN PAMOATE
     Indication: Prostate cancer
     Dosage: OTHER FREQUENCY : Q12WEEKS;?
     Route: 041
     Dates: start: 202110, end: 20220731
  2. ARANESP [Suspect]
     Active Substance: DARBEPOETIN ALFA
     Indication: Prostate cancer
     Dosage: OTHER STRENGTH : 100/0.5 UG/ML;?FREQUENCY : WEEKLY;?
     Route: 042
     Dates: start: 202110, end: 20220731
  3. BICALUTAMIDE [Concomitant]
     Active Substance: BICALUTAMIDE
  4. DOCETAXEL [Concomitant]
     Active Substance: DOCETAXEL
  5. IBUPROFEN [Concomitant]
     Active Substance: IBUPROFEN
  6. LUPRON [Concomitant]
     Active Substance: LEUPROLIDE ACETATE
  7. PREDNISONE [Concomitant]
     Active Substance: PREDNISONE
  8. TAMSULOSIN [Concomitant]
     Active Substance: TAMSULOSIN
  9. TYLENOL [Concomitant]
     Active Substance: ACETAMINOPHEN
  10. VENOFER [Concomitant]
     Active Substance: IRON SUCROSE
  11. XTANDI [Concomitant]
     Active Substance: ENZALUTAMIDE
  12. ZARXIO [Concomitant]
     Active Substance: FILGRASTIM-SNDZ

REACTIONS (1)
  - Death [None]

NARRATIVE: CASE EVENT DATE: 20220731
